FAERS Safety Report 6933521-8 (Version None)
Quarter: 2010Q3

REPORT INFORMATION
  Report Type: 
  Country: None (occurrence: None)
  Receive Date: 20100820
  Receipt Date: 20100816
  Transmission Date: 20110219
  Serious: Yes (Other)
  Sender: FDA-Public Use
  Company Number: US-BRISTOL-MYERS SQUIBB COMPANY-15242241

PATIENT
  Age: 52 Year
  Sex: Female

DRUGS (8)
  1. REYATAZ [Suspect]
  2. SUSTIVA [Suspect]
  3. METFORMIN HCL [Suspect]
     Dosage: DOSE INCREASED
  4. ALLORIL [Concomitant]
  5. PREVACID [Concomitant]
  6. ENALAPRIL MALEATE [Concomitant]
  7. VALTREX [Concomitant]
  8. EPZICOM [Concomitant]

REACTIONS (2)
  - BLOOD GLUCOSE INCREASED [None]
  - CELLULITIS [None]
